FAERS Safety Report 4976743-8 (Version None)
Quarter: 2006Q2

REPORT INFORMATION
  Report Type: 
  Country: None (occurrence: None)
  Receive Date: 20060419
  Receipt Date: 20050913
  Transmission Date: 20061013
  Serious: Yes (Other)
  Sender: FDA-Public Use
  Company Number: US-ROCHE-417759

PATIENT
  Age: 59 Year
  Sex: Female
  Weight: 54.9 kg

DRUGS (8)
  1. BONIVA [Suspect]
     Indication: OSTEOPOROSIS
     Route: 048
     Dates: end: 20050915
  2. VITAMIN C AND E [Concomitant]
     Indication: VITAMIN SUPPLEMENTATION
     Dosage: VITAMIN C AND E PLUS SELENIUM TDD: 1 DAILY
     Route: 048
  3. CALCIUM GLUCONATE [Concomitant]
     Indication: VITAMIN SUPPLEMENTATION
     Route: 048
  4. LIPITOR [Concomitant]
     Route: 048
  5. FOLIC ACID [Concomitant]
     Route: 048
  6. RHINOCORT [Concomitant]
     Dosage: ROUTE: NASAL
  7. MICARDIS HCT [Concomitant]
     Indication: HYPERTENSION
     Dosage: TDD: ONE TABLET IN MORNING. STRENGTH: 80/25 MG
     Route: 048
  8. ASPIRIN [Concomitant]
     Route: 048

REACTIONS (7)
  - ABDOMINAL PAIN UPPER [None]
  - COLONIC POLYP [None]
  - DIVERTICULUM [None]
  - GASTRIC POLYPS [None]
  - GASTRITIS [None]
  - HIATUS HERNIA [None]
  - OESOPHAGITIS [None]
